FAERS Safety Report 15665833 (Version 1)
Quarter: 2018Q4

REPORT INFORMATION
  Report Type: Spontaneous
  Country: US (occurrence: US)
  Receive Date: 20181128
  Receipt Date: 20181128
  Transmission Date: 20190205
  Serious: No
  Sender: FDA-Public Use
  Company Number: US-TARO-2017TAR01069

PATIENT
  Age: 60 Year
  Sex: Female
  Weight: 77.1 kg

DRUGS (5)
  1. CARBAMAZEPINE TABLETS CHEWABLE USP 100MG [Suspect]
     Active Substance: CARBAMAZEPINE
     Indication: TRIGEMINAL NEURALGIA
     Dosage: 150 MG, 2X/DAY (MORNING AND AFTERNOON)
     Route: 048
     Dates: start: 20171209
  2. UNSPECIFIED OIL FOR ECZEMA [Concomitant]
  3. SILVER MULTIVITAMIN [Concomitant]
  4. CARBAMAZEPINE TABLETS CHEWABLE USP 100MG [Suspect]
     Active Substance: CARBAMAZEPINE
     Dosage: 200 MG, 1X/DAY (AT NIGHT)
     Route: 048
     Dates: start: 20171209
  5. AUBAGIO [Concomitant]
     Active Substance: TERIFLUNOMIDE

REACTIONS (4)
  - Circumstance or information capable of leading to medication error [Not Recovered/Not Resolved]
  - Device breakage [Not Recovered/Not Resolved]
  - Product substitution issue [Not Recovered/Not Resolved]
  - Product quality issue [Not Recovered/Not Resolved]

NARRATIVE: CASE EVENT DATE: 201712
